FAERS Safety Report 7606536-4 (Version None)
Quarter: 2011Q3

REPORT INFORMATION
  Report Type: 
  Country: None (occurrence: None)
  Receive Date: 20110713
  Receipt Date: 20110711
  Transmission Date: 20111222
  Serious: Yes (Death, Life-Threatening, Hospitalization)
  Sender: FDA-Public Use
  Company Number: US-PFIZER INC-2011156053

PATIENT
  Sex: Female

DRUGS (10)
  1. LABETALOL [Concomitant]
     Dosage: 600MG (300MG, 2 IN 1 D)
     Route: 048
  2. ALLOPURINOL [Suspect]
     Indication: BLOOD URIC ACID
     Dosage: 1/2 TABLET 300MG QD
     Dates: start: 20091123
  3. ZEMPLAR [Concomitant]
     Dosage: 1MCG, 1X/DAY
     Route: 048
  4. FUROSEMIDE [Concomitant]
     Dosage: 40 MG, 1X/DAY
     Route: 048
  5. ASPIRIN [Concomitant]
     Dosage: 325MG (325MG, 1 IN 1 D)
     Route: 048
  6. LISINOPRIL [Concomitant]
     Dosage: 40 MG, 1X/DAY
     Route: 048
  7. LIPITOR [Concomitant]
     Dosage: 40 MG, 1X/DAY
     Route: 048
  8. IBUPROFEN [Suspect]
  9. AMLODIPINE BESYLATE [Suspect]
     Dosage: 5 MG, 1X/DAY
     Route: 048
     Dates: start: 20091209
  10. FEBUXOSTAT [Suspect]
     Indication: GOUT
     Dosage: 1/2 TABLET 80MG QD
     Dates: start: 20091228

REACTIONS (2)
  - TOXIC EPIDERMAL NECROLYSIS [None]
  - RENAL FAILURE ACUTE [None]
